FAERS Safety Report 7775438 (Version 2)
Quarter: 2013Q1

REPORT INFORMATION
  Report Type: Spontaneous
  Country: ES (occurrence: ES)
  Receive Date: 20110126
  Receipt Date: 20130318
  Transmission Date: 20140127
  Serious: Yes (Death, Hospitalization, Other)
  Sender: FDA-Public Use
  Company Number: ES-ELI_LILLY_AND_COMPANY-ES201101002860

PATIENT
  Sex: Female
  Weight: 47 kg

DRUGS (8)
  1. FORSTEO [Suspect]
     Indication: OSTEOPOROSIS
     Dosage: 20 UG, DAILY (1/D)
     Route: 058
     Dates: start: 20100914
  2. DIGOXINA [Concomitant]
     Indication: CARDIAC DISORDER
     Dosage: 1/2/24H
     Route: 048
  3. SEGURIL [Concomitant]
     Indication: CARDIAC DISORDER
     Dosage: UNK, 3/D
     Route: 048
  4. ALDACTONE [Concomitant]
     Indication: CARDIAC DISORDER
     Dosage: UNK, DAILY (1/D)
     Route: 048
  5. HIGROTONA [Concomitant]
     Indication: CARDIAC DISORDER
     Dosage: UNK, DAILY (1/D)
     Route: 048
  6. YATROX [Concomitant]
     Indication: NAUSEA
     Dosage: UNK, 2/D
     Route: 048
     Dates: end: 201011
  7. MOTILIUM [Concomitant]
     Indication: NAUSEA
     Dosage: UNK, 2/D
     Route: 048
     Dates: end: 201011
  8. DUROGESIC [Concomitant]
     Indication: PAIN
     Dosage: 1PATCH/48H

REACTIONS (4)
  - Cardiac disorder [Fatal]
  - Cardiac failure [Recovered/Resolved]
  - Cardiac failure [Unknown]
  - Acute pulmonary oedema [Recovered/Resolved]
